FAERS Safety Report 8293979-1 (Version None)
Quarter: 2012Q2

REPORT INFORMATION
  Report Type: 
  Country: None (occurrence: None)
  Receive Date: 20120413
  Receipt Date: 20120402
  Transmission Date: 20120825
  Serious: Yes (Death, Hospitalization)
  Sender: FDA-Public Use
  Company Number: 2012ST000292

PATIENT
  Age: 71 Year
  Sex: Male
  Weight: 118.3888 kg

DRUGS (11)
  1. ASPIRIN [Concomitant]
  2. COREG [Concomitant]
  3. MATULANE [Suspect]
     Indication: NON-HODGKIN'S LYMPHOMA
     Dosage: 100;120 MG, QD, PO
     Route: 048
     Dates: start: 20120222, end: 20120229
  4. MATULANE [Suspect]
     Indication: NON-HODGKIN'S LYMPHOMA
     Dosage: 100;120 MG, QD, PO
     Route: 048
     Dates: start: 20111130
  5. LASIX [Concomitant]
  6. FOLIC ACID [Concomitant]
  7. COUMADIN [Concomitant]
  8. FISH OIL [Concomitant]
  9. LOMOTIL [Concomitant]
  10. IMDUR [Concomitant]
  11. SIMVASTATIN [Concomitant]

REACTIONS (23)
  - ASTHENIA [None]
  - MYOCARDIAL INFARCTION [None]
  - BLOOD UREA INCREASED [None]
  - PLATELET COUNT DECREASED [None]
  - WHITE BLOOD CELL COUNT DECREASED [None]
  - ACTIVATED PARTIAL THROMBOPLASTIN TIME PROLONGED [None]
  - BLOOD CREATININE INCREASED [None]
  - ALANINE AMINOTRANSFERASE INCREASED [None]
  - RESPIRATORY RATE INCREASED [None]
  - DYSPNOEA [None]
  - BLOOD PRESSURE DECREASED [None]
  - ELECTROCARDIOGRAM ST-T CHANGE [None]
  - LUNG INFILTRATION [None]
  - SEPSIS [None]
  - PLEURAL EFFUSION [None]
  - PROTHROMBIN TIME PROLONGED [None]
  - BLOOD LACTIC ACID INCREASED [None]
  - ATRIAL FIBRILLATION [None]
  - HAEMOGLOBIN DECREASED [None]
  - HAEMATOCRIT DECREASED [None]
  - BLOOD POTASSIUM INCREASED [None]
  - CARDIO-RESPIRATORY ARREST [None]
  - ECG SIGNS OF MYOCARDIAL ISCHAEMIA [None]
